FAERS Safety Report 14139971 (Version 1)
Quarter: 2017Q4

REPORT INFORMATION
  Report Type: Spontaneous
  Country: GB (occurrence: GB)
  Receive Date: 20171030
  Receipt Date: 20171030
  Transmission Date: 20180321
  Serious: Yes (Other)
  Sender: FDA-Public Use
  Company Number: GB-TORRENT-00015779

PATIENT
  Age: 73 Year
  Sex: Female
  Weight: 76 kg

DRUGS (13)
  1. OTOMIZE [Concomitant]
     Active Substance: DEXAMETHASONE\NEOMYCIN SULFATE
  2. PREDNISOLONE. [Concomitant]
     Active Substance: PREDNISOLONE
  3. FOSTAIR [Concomitant]
     Active Substance: BECLOMETHASONE\FORMOTEROL
  4. LAXIDO [Concomitant]
     Active Substance: POLYETHYLENE GLYCOL 3350\POTASSIUM CHLORIDE\SODIUM BICARBONATE\SODIUM CHLORIDE
  5. BETAMETHASONE VALERATE. [Concomitant]
     Active Substance: BETAMETHASONE VALERATE
  6. MONTELUKAST [Suspect]
     Active Substance: MONTELUKAST SODIUM
  7. CLENIL MODULITE [Concomitant]
     Active Substance: BECLOMETHASONE DIPROPIONATE
  8. ESTRADIOL. [Concomitant]
     Active Substance: ESTRADIOL
  9. VENTOLIN [Concomitant]
     Active Substance: ALBUTEROL SULFATE
  10. AMOXICILLIN. [Concomitant]
     Active Substance: AMOXICILLIN
  11. DOXYCYCLINE. [Concomitant]
     Active Substance: DOXYCYCLINE
  12. SALMETEROL [Concomitant]
     Active Substance: SALMETEROL
  13. SALBUTAMOL [Suspect]
     Active Substance: ALBUTEROL

REACTIONS (2)
  - Tremor [Recovered/Resolved]
  - Wheezing [Recovered/Resolved]

NARRATIVE: CASE EVENT DATE: 20171013
